FAERS Safety Report 8559702-8 (Version None)
Quarter: 2012Q3

REPORT INFORMATION
  Report Type: 
  Country: None (occurrence: None)
  Receive Date: 20120727
  Receipt Date: 20120727
  Transmission Date: 20120928
  Serious: Yes (Hospitalization)
  Sender: FDA-Public Use
  Company Number: None

PATIENT
  Age: 54 Year
  Sex: Male
  Weight: 122.3 kg

DRUGS (16)
  1. VISIPAQUE [Suspect]
     Indication: SCAN WITH CONTRAST
     Dosage: 320ML ONCE IV RECENT
     Route: 042
  2. NORVASC [Concomitant]
  3. VITAMIN D [Concomitant]
  4. PLAVIX [Concomitant]
  5. LOVENOX [Suspect]
     Dosage: 120MG ONCE IV RECENT
     Route: 042
  6. WARFARIN SODIUM [Suspect]
     Indication: PERIPHERAL ARTERIAL OCCLUSIVE DISEASE
     Dosage: 12.5 MG PO QD CHRONIC
     Route: 048
  7. NOVOLOG [Concomitant]
  8. FUROSEMIDE [Concomitant]
  9. CARVEDILOL [Concomitant]
  10. LIPITOR [Concomitant]
  11. WARFARIN SODIUM [Concomitant]
  12. METOLAZONE [Concomitant]
  13. METFORMIN HYDROCHLORIDE [Concomitant]
  14. DIOVAN [Concomitant]
  15. ASPIRIN [Concomitant]
  16. LANTUS [Concomitant]

REACTIONS (6)
  - RENAL FAILURE ACUTE [None]
  - COAGULOPATHY [None]
  - INTERNATIONAL NORMALISED RATIO INCREASED [None]
  - TOE AMPUTATION [None]
  - WOUND [None]
  - GANGRENE [None]
